FAERS Safety Report 5267801-1 (Version None)
Quarter: 2007Q1

REPORT INFORMATION
  Report Type: 
  Country: None (occurrence: None)
  Receive Date: 20070316
  Receipt Date: 20070306
  Transmission Date: 20070707
  Serious: Yes (Other)
  Sender: FDA-Public Use
  Company Number: FR-PFIZER INC-2007018171

PATIENT

DRUGS (1)
  1. GABAPENTIN [Suspect]
     Indication: PAIN

REACTIONS (1)
  - HYPOTHERMIA [None]
